FAERS Safety Report 22005464 (Version 1)
Quarter: 2023Q1

REPORT INFORMATION
  Report Type: Spontaneous
  Country: JP (occurrence: JP)
  Receive Date: 20230217
  Receipt Date: 20230217
  Transmission Date: 20230417
  Serious: Yes (Other)
  Sender: FDA-Public Use
  Company Number: JP-BAYER-2023A014830

PATIENT
  Age: 81 Year
  Sex: Female
  Weight: 51 kg

DRUGS (9)
  1. NEXAVAR [Suspect]
     Active Substance: SORAFENIB
     Indication: Hepatocellular carcinoma
     Dosage: UNK
     Dates: start: 20230110
  2. NEXAVAR [Suspect]
     Active Substance: SORAFENIB
     Indication: Hepatocellular carcinoma
     Dosage: 400 MG, BID
     Route: 048
     Dates: start: 20230131, end: 20230203
  3. ATEZOLIZUMAB [Suspect]
     Active Substance: ATEZOLIZUMAB
     Indication: Hepatocellular carcinoma
     Dosage: 1200MG/DOSE
     Route: 042
     Dates: start: 20221025, end: 20221206
  4. AMLODIPINE [Concomitant]
     Active Substance: AMLODIPINE BESYLATE
  5. OLMESARTAN [Concomitant]
     Active Substance: OLMESARTAN
  6. LANSOPRAZOLE [Concomitant]
     Active Substance: LANSOPRAZOLE
  7. URSO [Concomitant]
     Active Substance: URSODIOL
  8. LOXOPROFEN SODIUM [Concomitant]
     Active Substance: LOXOPROFEN SODIUM
  9. REBAMIPIDE [Concomitant]
     Active Substance: REBAMIPIDE

REACTIONS (4)
  - Hepatic encephalopathy [Recovering/Resolving]
  - Depressed level of consciousness [None]
  - Dementia [None]
  - Hyperammonaemia [None]

NARRATIVE: CASE EVENT DATE: 20230101
